FAERS Safety Report 7970955-7 (Version None)
Quarter: 2011Q4

REPORT INFORMATION
  Report Type: 
  Country: None (occurrence: None)
  Receive Date: 20111212
  Receipt Date: 20111205
  Transmission Date: 20120403
  Serious: Yes (Death, Life-Threatening, Hospitalization)
  Sender: FDA-Public Use
  Company Number: DE-BRISTOL-MYERS SQUIBB COMPANY-15964711

PATIENT
  Age: 46 Year
  Sex: Male
  Weight: 112 kg

DRUGS (1)
  1. IPILIMUMAB [Suspect]
     Indication: MALIGNANT MELANOMA
     Dosage: 3RD CYCLE ON 20JUL11. DAILLY DOSE:338MG
     Route: 042
     Dates: start: 20110608, end: 20110720

REACTIONS (3)
  - INTRACRANIAL TUMOUR HAEMORRHAGE [None]
  - NEOPLASM MALIGNANT [None]
  - DEPRESSED LEVEL OF CONSCIOUSNESS [None]
